FAERS Safety Report 10735800 (Version 1)
Quarter: 2015Q1

REPORT INFORMATION
  Report Type: Report from Study
  Country: US (occurrence: US)
  Receive Date: 20150126
  Receipt Date: 20150126
  Transmission Date: 20150721
  Serious: Yes (Hospitalization)
  Sender: FDA-Public Use
  Company Number: US-BIOGENIDEC-2015BI004855

PATIENT
  Age: 51 Year
  Sex: Female

DRUGS (14)
  1. DETROL LA [Concomitant]
     Active Substance: TOLTERODINE TARTRATE
  2. BENZTROPINE MES [Concomitant]
     Active Substance: BENZTROPINE MESYLATE
  3. TECFIDERA [Suspect]
     Active Substance: DIMETHYL FUMARATE
     Indication: RELAPSING-REMITTING MULTIPLE SCLEROSIS
     Dates: start: 20130411
  4. SAPHRIS [Concomitant]
     Active Substance: ASENAPINE MALEATE
     Route: 060
  5. SEROQUEL XR [Concomitant]
     Active Substance: QUETIAPINE FUMARATE
  6. HYDROXYZINE HCL [Concomitant]
     Active Substance: HYDROXYZINE HYDROCHLORIDE
  7. COLACE [Concomitant]
     Active Substance: DOCUSATE SODIUM
  8. KLONOPIN [Concomitant]
     Active Substance: CLONAZEPAM
  9. LASIX [Concomitant]
     Active Substance: FUROSEMIDE
  10. DIVALPROEX SOD DR [Concomitant]
  11. LISINOPRIL. [Concomitant]
     Active Substance: LISINOPRIL
  12. CALCIUM-VITAMIN D [Concomitant]
  13. LACTULOSE. [Concomitant]
     Active Substance: LACTULOSE
  14. MELOXICAM. [Concomitant]
     Active Substance: MELOXICAM

REACTIONS (1)
  - Bipolar I disorder [Not Recovered/Not Resolved]
